FAERS Safety Report 5052610-9 (Version None)
Quarter: 2006Q3

REPORT INFORMATION
  Report Type: 
  Country: None (occurrence: None)
  Receive Date: 20060717
  Receipt Date: 20060707
  Transmission Date: 20061208
  Serious: Yes (Hospitalization, Other)
  Sender: FDA-Public Use
  Company Number: 2006-00066

PATIENT
  Age: 32 Year
  Sex: Female
  Weight: 62 kg

DRUGS (6)
  1. PAROXETINE HCL [Suspect]
     Indication: SCHIZOPHRENIA
     Dosage: 20MG PER DAY
     Route: 048
     Dates: start: 20060101, end: 20060505
  2. REMERON [Suspect]
     Indication: SCHIZOPHRENIA
     Dosage: 30MG PER DAY
     Route: 048
     Dates: start: 20060101, end: 20060505
  3. ZYPREXA [Concomitant]
     Indication: SCHIZOPHRENIA
     Dosage: 25MG PER DAY
     Route: 048
  4. NEXIUM [Concomitant]
     Indication: PROPHYLAXIS
     Dosage: 20MG PER DAY
     Route: 048
  5. NOZINAN [Concomitant]
     Indication: SCHIZOPHRENIA
     Dosage: 1U AS REQUIRED
     Route: 048
  6. STESOLID [Concomitant]
     Indication: STATUS EPILEPTICUS
     Dosage: 10MG AS REQUIRED
     Route: 054

REACTIONS (8)
  - BLOOD OSMOLARITY DECREASED [None]
  - HYPOKALAEMIA [None]
  - HYPONATRAEMIA [None]
  - HYPOTENSION [None]
  - MALAISE [None]
  - RESTLESSNESS [None]
  - STATUS EPILEPTICUS [None]
  - VOMITING [None]
